FAERS Safety Report 10775639 (Version 1)
Quarter: 2015Q1

REPORT INFORMATION
  Report Type: Spontaneous
  Country: US (occurrence: US)
  Receive Date: 20150209
  Receipt Date: 20150209
  Transmission Date: 20150721
  Serious: No
  Sender: FDA-Public Use
  Company Number: US-BRISTOL-MYERS SQUIBB COMPANY-BMS-2015-006956

PATIENT
  Age: 45 Year
  Sex: Female

DRUGS (1)
  1. SPRYCEL [Suspect]
     Active Substance: DASATINIB
     Indication: PRODUCT USED FOR UNKNOWN INDICATION

REACTIONS (7)
  - Dyspnoea [Unknown]
  - Fatigue [Unknown]
  - Influenza like illness [Recovering/Resolving]
  - Chest pain [Unknown]
  - Toothache [Unknown]
  - Myalgia [Unknown]
  - Cough [Unknown]

NARRATIVE: CASE EVENT DATE: 20150109
